FAERS Safety Report 5831613-8 (Version None)
Quarter: 2008Q3

REPORT INFORMATION
  Report Type: 
  Country: None (occurrence: None)
  Receive Date: 20080801
  Receipt Date: 20080722
  Transmission Date: 20090109
  Serious: Yes (Other)
  Sender: FDA-Public Use
  Company Number: JP-PFIZER INC-2008062218

PATIENT
  Age: 35 Year
  Sex: Male

DRUGS (1)
  1. RELPAX [Suspect]
     Route: 048

REACTIONS (1)
  - VISUAL FIELD DEFECT [None]
